FAERS Safety Report 4548163-1 (Version None)
Quarter: 2004Q4

REPORT INFORMATION
  Report Type: 
  Country: None (occurrence: None)
  Receive Date: 20041227
  Receipt Date: 20040927
  Transmission Date: 20050328
  Serious: No
  Sender: FDA-Public Use
  Company Number: 04P-163-0275068-00

PATIENT
  Sex: Male

DRUGS (1)
  1. HUMIRA [Suspect]
     Dosage: SEE IMAGE
     Route: 058

REACTIONS (5)
  - ARTHRALGIA [None]
  - BACK PAIN [None]
  - NIGHT SWEATS [None]
  - PYREXIA [None]
  - TOOTH ABSCESS [None]
